FAERS Safety Report 10358315 (Version 2)
Quarter: 2014Q4

REPORT INFORMATION
  Report Type: Spontaneous
  Country: US (occurrence: None)
  Receive Date: 20140730
  Receipt Date: 20141024
  Transmission Date: 20150528
  Serious: Yes (Death, Hospitalization)
  Sender: FDA-Public Use
  Company Number: UNT-2014-004335

PATIENT
  Age: 25 Year
  Sex: Female
  Weight: 47.6 kg

DRUGS (2)
  1. REVATIO (SILDENAFIL CITRATE) [Concomitant]
  2. REMODULIN [Suspect]
     Active Substance: TREPROSTINIL
     Indication: COR PULMONALE CHRONIC
     Route: 058
     Dates: start: 20140514

REACTIONS (2)
  - Treatment noncompliance [None]
  - Drug dose omission [None]

NARRATIVE: CASE EVENT DATE: 2014
